FAERS Safety Report 5838346-2 (Version None)
Quarter: 2008Q3

REPORT INFORMATION
  Report Type: 
  Country: None (occurrence: None)
  Receive Date: 20080808
  Receipt Date: 20080729
  Transmission Date: 20090109
  Serious: Yes (Hospitalization, Other)
  Sender: FDA-Public Use
  Company Number: US-ROCHE-578383

PATIENT
  Sex: Male

DRUGS (2)
  1. PEG-INTERFERON A-2A (RO 25-8310) [Suspect]
     Dosage: FORM: PRE-FILLED SYRINGE
     Route: 065
     Dates: start: 20080120
  2. RIBAVIRIN [Suspect]
     Route: 065
     Dates: start: 20080120, end: 20080525

REACTIONS (3)
  - CELLULITIS STAPHYLOCOCCAL [None]
  - POLYCYTHAEMIA VERA [None]
  - WHITE BLOOD CELL COUNT DECREASED [None]
